FAERS Safety Report 19337054 (Version 6)
Quarter: 2021Q4

REPORT INFORMATION
  Report Type: Spontaneous
  Country: CN (occurrence: CN)
  Receive Date: 20210530
  Receipt Date: 20211013
  Transmission Date: 20220304
  Serious: Yes (Life-Threatening, Hospitalization, Other)
  Sender: FDA-Public Use
  Company Number: NVSC2021CN118774

PATIENT
  Age: 50 Year
  Sex: Female
  Weight: 55.5 kg

DRUGS (7)
  1. FEMARA [Suspect]
     Active Substance: LETROZOLE
     Indication: Breast cancer
     Dosage: 2.5 MG, QD
     Route: 048
     Dates: start: 20210319, end: 20210415
  2. FEMARA [Suspect]
     Active Substance: LETROZOLE
     Dosage: 2.5 MG, QD
     Route: 048
     Dates: start: 20210416, end: 20210506
  3. MOMETASONE FUROATE [Concomitant]
     Active Substance: MOMETASONE FUROATE
     Indication: Product used for unknown indication
     Dosage: UNK, PRN (APPROPRIATE AMOUNT /OTHER) (ACCORDING TO NEED)
     Route: 065
     Dates: start: 20210223
  4. METOPROLOL [Concomitant]
     Active Substance: METOPROLOL
     Indication: Product used for unknown indication
     Dosage: 12.5 MG, QD
     Route: 065
     Dates: start: 20210416
  5. GU TONG NING [Concomitant]
     Indication: Product used for unknown indication
     Dosage: 1/PATCH, QD (PLASTER)
     Route: 065
     Dates: start: 20210422
  6. RECOMBINANT HUMAN GRANULOCYTE COLONY STIMULAT [Concomitant]
     Indication: Product used for unknown indication
     Dosage: 200 UG, QD (INJECTION POWDER)
     Route: 065
     Dates: start: 20210507, end: 20210507
  7. CEFOPERAZONE SODIUM\SULBACTAM SODIUM [Concomitant]
     Active Substance: CEFOPERAZONE SODIUM\SULBACTAM SODIUM
     Indication: Prophylaxis
     Dosage: 1.5 G, BID
     Route: 065
     Dates: start: 20210509

REACTIONS (27)
  - Pulmonary embolism [Recovered/Resolved with Sequelae]
  - Respiratory failure [Not Recovered/Not Resolved]
  - Hypoxia [Unknown]
  - Oxygen saturation decreased [Unknown]
  - Aphasia [Unknown]
  - Confusional state [Unknown]
  - Aspergillus infection [Unknown]
  - Embolism venous [Unknown]
  - Dyspnoea [Recovering/Resolving]
  - Loss of consciousness [Unknown]
  - Pericardial effusion [Unknown]
  - Pneumonia [Unknown]
  - Cholecystitis acute [Unknown]
  - Agranulocytosis [Unknown]
  - Deep vein thrombosis [Unknown]
  - Pleural effusion [Unknown]
  - Radiation pneumonitis [Unknown]
  - Pulmonary mass [Unknown]
  - Atelectasis [Unknown]
  - Electrolyte imbalance [Unknown]
  - Anaemia [Unknown]
  - Lymphadenitis [Unknown]
  - Abdominal distension [Unknown]
  - Leukocytosis [Unknown]
  - Back pain [Unknown]
  - Abdominal pain [Unknown]
  - Inflammation [Unknown]

NARRATIVE: CASE EVENT DATE: 20210509
